FAERS Safety Report 18043134 (Version 3)
Quarter: 2020Q3

REPORT INFORMATION
  Report Type: Spontaneous
  Country: US (occurrence: US)
  Receive Date: 20200720
  Receipt Date: 20200722
  Transmission Date: 20201103
  Serious: Yes (Other)
  Sender: FDA-Public Use
  Company Number: US-PFIZER INC-2020273962

PATIENT
  Age: 51 Year
  Sex: Female

DRUGS (13)
  1. MEKTOVI [Suspect]
     Active Substance: BINIMETINIB
     Dosage: 45 MG, 1X/DAY
     Route: 048
  2. ACETAMINOPHEN. [Concomitant]
     Active Substance: ACETAMINOPHEN
     Dosage: UNK
  3. DEXAMETHASONE. [Concomitant]
     Active Substance: DEXAMETHASONE
     Dosage: UNK
  4. KEYTRUDA [Concomitant]
     Active Substance: PEMBROLIZUMAB
     Dosage: UNK
  5. MEKTOVI [Suspect]
     Active Substance: BINIMETINIB
     Indication: SKIN CANCER
     Dosage: 45 MG, 1X/DAY
     Route: 048
     Dates: start: 20200102
  6. CORTEF [Concomitant]
     Active Substance: HYDROCORTISONE
     Dosage: UNK
  7. ONDANSETRON HYDROCHLORIDE. [Concomitant]
     Active Substance: ONDANSETRON HYDROCHLORIDE
     Dosage: UNK
  8. OMEPRAZOLE. [Concomitant]
     Active Substance: OMEPRAZOLE
     Dosage: UNK
  9. BINIMETINIB [Concomitant]
     Active Substance: BINIMETINIB
     Dosage: UNK
  10. CETRIZINE [Concomitant]
     Active Substance: CETIRIZINE HYDROCHLORIDE
     Dosage: UNK
  11. METOCLOPRAMIDE HCL [Concomitant]
     Active Substance: METOCLOPRAMIDE HYDROCHLORIDE
     Dosage: UNK
  12. BRAFTOVI [Suspect]
     Active Substance: ENCORAFENIB
     Indication: SKIN CANCER
     Dosage: 450 MG, 1X/DAY
     Route: 048
     Dates: start: 20200102
  13. BRAFTOVI [Suspect]
     Active Substance: ENCORAFENIB
     Dosage: 450 MG, 1X/DAY
     Route: 048

REACTIONS (4)
  - Diarrhoea [Not Recovered/Not Resolved]
  - Seizure [Unknown]
  - Malaise [Unknown]
  - Weight decreased [Unknown]

NARRATIVE: CASE EVENT DATE: 2020
